FAERS Safety Report 4588666-7 (Version None)
Quarter: 2005Q1

REPORT INFORMATION
  Report Type: 
  Country: None (occurrence: None)
  Receive Date: 20050222
  Receipt Date: 20050105
  Transmission Date: 20050727
  Serious: Yes (Life-Threatening)
  Sender: FDA-Public Use
  Company Number: JP-MERCK-0501USA00649

PATIENT
  Age: 72 Year
  Sex: Male
  Weight: 59 kg

DRUGS (7)
  1. COZAAR [Suspect]
     Indication: HYPERTENSION
     Route: 048
     Dates: end: 20041223
  2. NORVASC [Concomitant]
     Route: 048
  3. OPALMON [Concomitant]
     Route: 048
  4. CALTAN [Concomitant]
     Route: 048
  5. SELBEX [Concomitant]
     Route: 048
  6. VITAMIN E [Concomitant]
     Route: 048
  7. RISUMIC [Concomitant]
     Route: 048

REACTIONS (1)
  - ANAPHYLACTIC SHOCK [None]
